FAERS Safety Report 4414301-4 (Version None)
Quarter: 2004Q2

REPORT INFORMATION
  Report Type: 
  Country: None (occurrence: None)
  Receive Date: 20040630
  Receipt Date: 20040518
  Transmission Date: 20050107
  Serious: No
  Sender: FDA-Public Use
  Company Number: 04P-163-0261252-00

PATIENT
  Sex: Female

DRUGS (1)
  1. HUMIRA [Suspect]

REACTIONS (1)
  - DRUG INEFFECTIVE [None]
